FAERS Safety Report 25377995 (Version 2)
Quarter: 2025Q2

REPORT INFORMATION
  Report Type: Spontaneous
  Country: JP (occurrence: JP)
  Receive Date: 20250530
  Receipt Date: 20250611
  Transmission Date: 20250716
  Serious: Yes (Hospitalization)
  Sender: MERCK SHARP & DOHME LLC
  Company Number: JP-BAYER-2025A070271

PATIENT

DRUGS (1)
  1. VERQUVO [Suspect]
     Active Substance: VERICIGUAT

REACTIONS (1)
  - Hospitalisation [Unknown]
